FAERS Safety Report 11857659 (Version 1)
Quarter: 2015Q4

REPORT INFORMATION
  Report Type: Spontaneous
  Country: US (occurrence: None)
  Receive Date: 20151221
  Receipt Date: 20151221
  Transmission Date: 20160305
  Serious: Yes (Life-Threatening, Hospitalization, Disabling)
  Sender: FDA-Public Use
  Company Number: None

PATIENT
  Age: 50 Year
  Sex: Female
  Weight: 108.86 kg

DRUGS (6)
  1. VALSARTAN. [Concomitant]
     Active Substance: VALSARTAN
  2. VITAMIN D [Concomitant]
     Active Substance: CHOLECALCIFEROL
  3. GILENYA [Suspect]
     Active Substance: FINGOLIMOD HYDROCHLORIDE
     Indication: RELAPSING-REMITTING MULTIPLE SCLEROSIS
     Route: 048
     Dates: start: 20141031, end: 20151207
  4. OXYCONTIN [Concomitant]
     Active Substance: OXYCODONE HYDROCHLORIDE
  5. OXYCODONE [Concomitant]
     Active Substance: OXYCODONE
  6. DOXYCYCLINE HYCLATE. [Concomitant]
     Active Substance: DOXYCYCLINE HYCLATE

REACTIONS (8)
  - White blood cell count decreased [None]
  - Progressive multifocal leukoencephalopathy [None]
  - Rash [None]
  - Mental status changes [None]
  - Aggression [None]
  - Catatonia [None]
  - Delirium [None]
  - Agitation [None]

NARRATIVE: CASE EVENT DATE: 20151209
